FAERS Safety Report 6988624-9 (Version None)
Quarter: 2010Q3

REPORT INFORMATION
  Report Type: 
  Country: None (occurrence: None)
  Receive Date: 20100827
  Receipt Date: 20090909
  Transmission Date: 20110219
  Serious: Yes (Other)
  Sender: FDA-Public Use
  Company Number: 2009246525

PATIENT
  Age: 84 Year
  Sex: Female
  Weight: 59 kg

DRUGS (1)
  1. VORICONAZOLE [Suspect]
     Dosage: ORAL
     Route: 048
     Dates: start: 20090721, end: 20090722

REACTIONS (5)
  - DIARRHOEA [None]
  - HALLUCINATION [None]
  - NAUSEA [None]
  - VISUAL IMPAIRMENT [None]
  - VOMITING [None]
